FAERS Safety Report 8511959-5 (Version None)
Quarter: 2012Q3

REPORT INFORMATION
  Report Type: 
  Country: None (occurrence: None)
  Receive Date: 20120716
  Receipt Date: 20120712
  Transmission Date: 20120928
  Serious: Yes (Hospitalization)
  Sender: FDA-Public Use
  Company Number: PHHY2009DE67768

PATIENT
  Sex: Female

DRUGS (6)
  1. TIZANIDINE HYDROCHLORIDE [Concomitant]
     Indication: MUSCLE SPASTICITY
     Dosage: 6 MG, DAILY
     Route: 048
  2. VALORON DROPS [Concomitant]
     Indication: RESTLESS LEGS SYNDROME
  3. EXTAVIA [Suspect]
     Indication: MULTIPLE SCLEROSIS
     Dosage: 1 ML, QOD
     Route: 058
     Dates: start: 20090501, end: 20100201
  4. VIVEO [Concomitant]
     Indication: MUSCLE SPASTICITY
     Dosage: 450 MG, DAILY
     Route: 048
  5. MAXALT [Concomitant]
     Indication: MIGRAINE
     Dosage: UNK UKN, AS NEEDED
     Route: 048
  6. VALORON DROPS [Concomitant]
     Indication: PAIN
     Dosage: 60 DRP, DAILY
     Route: 048

REACTIONS (3)
  - ERYTHEMA [None]
  - MOOD SWINGS [None]
  - PARONYCHIA [None]
